FAERS Safety Report 24060201 (Version 1)
Quarter: 2024Q3

REPORT INFORMATION
  Report Type: Spontaneous
  Country: KZ (occurrence: KZ)
  Receive Date: 20240708
  Receipt Date: 20240708
  Transmission Date: 20241016
  Serious: Yes (Other)
  Sender: BAYER
  Company Number: DE-BAYER-2024A085068

PATIENT
  Age: 51 Year
  Sex: Male

DRUGS (7)
  1. STIVARGA [Suspect]
     Active Substance: REGORAFENIB MONOHYDRATE
     Indication: Adenocarcinoma of colon
     Dosage: 80 MG, QD
     Dates: start: 2023
  2. STIVARGA [Suspect]
     Active Substance: REGORAFENIB MONOHYDRATE
     Indication: Adenocarcinoma of colon
     Dosage: 80 MG, BID(2 TABLETS EVERY 12 HOURS)
  3. TRAMADOL [Concomitant]
     Active Substance: TRAMADOL\TRAMADOL HYDROCHLORIDE
     Dosage: UNK
  4. IBUPROFEN [Concomitant]
     Active Substance: IBUPROFEN
     Dosage: UNK
  5. RIFAXIMIN [Concomitant]
     Active Substance: RIFAXIMIN
  6. HEPTRAL [Concomitant]
     Active Substance: ADEMETIONINE
  7. NOLPAZA CONTROL [Concomitant]

REACTIONS (7)
  - Terminal state [Recovering/Resolving]
  - Metastases to liver [Recovering/Resolving]
  - General physical health deterioration [Recovering/Resolving]
  - Feeling abnormal [Recovering/Resolving]
  - Food refusal [None]
  - Off label use [None]
  - Inappropriate schedule of product administration [None]
